FAERS Safety Report 7012683-0 (Version None)
Quarter: 2010Q3

REPORT INFORMATION
  Report Type: 
  Country: None (occurrence: None)
  Receive Date: 20100924
  Receipt Date: 20100917
  Transmission Date: 20110219
  Serious: Yes (Other)
  Sender: FDA-Public Use
  Company Number: JP-ASTRAZENECA-2010SE44266

PATIENT
  Age: 50 Year
  Sex: Female

DRUGS (1)
  1. ZOLADEX [Suspect]
     Indication: BREAST CANCER
     Route: 058

REACTIONS (1)
  - UTERINE CANCER [None]
